FAERS Safety Report 8175195-7 (Version None)
Quarter: 2012Q1

REPORT INFORMATION
  Report Type: 
  Country: None (occurrence: None)
  Receive Date: 20120229
  Receipt Date: 20120224
  Transmission Date: 20120608
  Serious: Yes (Hospitalization)
  Sender: FDA-Public Use
  Company Number: US-PFIZER INC-2011135990

PATIENT
  Sex: Female
  Weight: 78.005 kg

DRUGS (7)
  1. CRIZOTINIB [Suspect]
     Indication: NON-SMALL CELL LUNG CANCER
     Dosage: 250 MG, 2X/DAY
     Route: 048
     Dates: start: 20110609, end: 20110616
  2. POTASSIUM CHLORIDE [Concomitant]
     Indication: SUPPLEMENTATION THERAPY
     Dosage: AS NEEDED
     Route: 048
  3. ONDANSETRON [Concomitant]
     Indication: NAUSEA
     Dosage: AS NEEDED
     Route: 048
     Dates: start: 20100801
  4. OXYCODONE AND ACETAMINOPHEN [Concomitant]
     Indication: PAIN
     Dosage: UNK, AS NEEDED
     Route: 048
  5. IBUPROFEN [Concomitant]
     Indication: ARTHRALGIA
     Dosage: 3X/DAY
     Route: 048
     Dates: start: 20110401
  6. MEDROXYPROGESTERONE [Concomitant]
     Indication: MENORRHAGIA
     Dosage: 1X/DAY
     Route: 048
     Dates: start: 20110201
  7. FERROUS SULFATE [Concomitant]
     Indication: SUPPLEMENTATION THERAPY
     Dosage: 3X/DAY
     Route: 048

REACTIONS (1)
  - MYOCARDITIS [None]
